FAERS Safety Report 23986558 (Version 1)
Quarter: 2024Q2

REPORT INFORMATION
  Report Type: Spontaneous
  Country: US (occurrence: None)
  Receive Date: 20240617
  Receipt Date: 20240617
  Transmission Date: 20240716
  Serious: Yes (Other)
  Sender: FDA-Public Use
  Company Number: None

PATIENT
  Age: 62 Year
  Sex: Female
  Weight: 61.2 kg

DRUGS (10)
  1. ALLERGY RELIEF (CETIRIZINE HYDROCHLORIDE) [Suspect]
     Active Substance: CETIRIZINE HYDROCHLORIDE
     Indication: Rhinitis allergic
     Dosage: FREQUENCY : DAILY;?
     Route: 048
  2. ESTRACE [Concomitant]
     Active Substance: ESTRADIOL
  3. Ovar [Concomitant]
  4. ALBUTEROL [Concomitant]
     Active Substance: ALBUTEROL
  5. Calcium/Mg/Zn [Concomitant]
  6. VITAMIN D NOS [Concomitant]
     Active Substance: CHOLECALCIFEROL\ERGOCALCIFEROL
  7. CALCIUM CARBONATE [Concomitant]
  8. VITAMINS [Concomitant]
     Active Substance: VITAMINS
  9. VITAMIN B12 [Concomitant]
     Active Substance: CYANOCOBALAMIN
  10. MELATONIN [Concomitant]
     Active Substance: MELATONIN

REACTIONS (3)
  - Pruritus [None]
  - Rash [None]
  - Petechiae [None]

NARRATIVE: CASE EVENT DATE: 20240616
